FAERS Safety Report 11283167 (Version 1)
Quarter: 2015Q3

REPORT INFORMATION
  Report Type: Spontaneous
  Country: US (occurrence: US)
  Receive Date: 20150720
  Receipt Date: 20150720
  Transmission Date: 20151125
  Serious: Yes (Hospitalization)
  Sender: FDA-Public Use
  Company Number: CHPA2015US008517

PATIENT
  Age: 54 Year
  Sex: Female

DRUGS (4)
  1. UNFRACTIONATED HEPARIN [Concomitant]
     Active Substance: HEPARIN SODIUM
     Indication: PRODUCT USED FOR UNKNOWN INDICATION
     Route: 065
  2. DARBEPOETIN ALFA [Concomitant]
     Active Substance: DARBEPOETIN ALFA
     Indication: PRODUCT USED FOR UNKNOWN INDICATION
     Route: 065
  3. ASPIRIN. [Concomitant]
     Active Substance: ASPIRIN
     Indication: PRODUCT USED FOR UNKNOWN INDICATION
     Route: 065
  4. SCOPALAMINIE HYDROBROMIDE [Suspect]
     Active Substance: SCOPOLAMINE
     Indication: INCREASED BRONCHIAL SECRETION
     Dosage: UNK
     Route: 062

REACTIONS (1)
  - Ventricular tachycardia [Recovered/Resolved]
